FAERS Safety Report 4724310-3 (Version None)
Quarter: 2005Q3

REPORT INFORMATION
  Report Type: 
  Country: None (occurrence: None)
  Receive Date: 20050722
  Receipt Date: 20050706
  Transmission Date: 20060218
  Serious: Yes (Death, Hospitalization)
  Sender: FDA-Public Use
  Company Number: A-CH2005-10121

PATIENT
  Age: 57 Year
  Sex: Female

DRUGS (1)
  1. TRACLEER [Suspect]
     Indication: PULMONARY HYPERTENSION
     Dosage: ORAL
     Route: 048
     Dates: start: 20051103, end: 20050601

REACTIONS (5)
  - CHOLELITHIASIS OBSTRUCTIVE [None]
  - CONDITION AGGRAVATED [None]
  - PANCREATITIS [None]
  - PNEUMONIA [None]
  - PULMONARY HYPERTENSION [None]
